FAERS Safety Report 19097812 (Version 2)
Quarter: 2021Q2

REPORT INFORMATION
  Report Type: Report from Study
  Country: CA (occurrence: CA)
  Receive Date: 20210406
  Receipt Date: 20210409
  Transmission Date: 20210717
  Serious: Yes (Other)
  Sender: FDA-Public Use
  Company Number: CA-GLAXOSMITHKLINE-CA2021073363

PATIENT
  Age: 76 Year
  Sex: Male

DRUGS (2)
  1. BELANTAMAB MAFODOTIN. [Suspect]
     Active Substance: BELANTAMAB MAFODOTIN
     Indication: PLASMA CELL MYELOMA
     Dosage: 82 MG, CYC
     Route: 042
     Dates: start: 20201126
  2. NIROGACESTAT (NON?GSK) [Suspect]
     Active Substance: NIROGACESTAT
     Indication: PLASMA CELL MYELOMA
     Dosage: 2 DF, BID
     Route: 048
     Dates: start: 20201126

REACTIONS (1)
  - Colorectal adenocarcinoma [Not Recovered/Not Resolved]

NARRATIVE: CASE EVENT DATE: 20210329
